FAERS Safety Report 7946567-8 (Version None)
Quarter: 2011Q4

REPORT INFORMATION
  Report Type: 
  Country: None (occurrence: None)
  Receive Date: 20111129
  Receipt Date: 20111118
  Transmission Date: 20120403
  Serious: Yes (Death)
  Sender: FDA-Public Use
  Company Number: JP-GENZYME-THYM-1002925

PATIENT
  Sex: Female
  Weight: 50 kg

DRUGS (8)
  1. VORICONAZOLE [Concomitant]
     Indication: INFECTION PROPHYLAXIS
     Dosage: UNK
     Route: 065
     Dates: start: 20110223, end: 20110305
  2. CALCIUM CARBONATE [Concomitant]
     Indication: RENAL FAILURE CHRONIC
     Dosage: UNK
     Route: 065
     Dates: start: 20110225, end: 20110305
  3. PREDNISOLONE [Concomitant]
     Indication: PREMEDICATION
     Dosage: UNK
     Route: 065
     Dates: start: 20110221, end: 20110305
  4. DORIPENEM HYDRATE [Concomitant]
     Indication: INFECTION PROPHYLAXIS
     Dosage: UNK
     Route: 065
     Dates: start: 20110224, end: 20110305
  5. PLATELETS, CONCENTRATED [Concomitant]
     Indication: MYELODYSPLASTIC SYNDROME
     Dosage: UNK
     Route: 065
     Dates: start: 20110205, end: 20110305
  6. FILGRASTIM [Concomitant]
     Indication: MYELODYSPLASTIC SYNDROME
     Dosage: UNK
     Route: 065
     Dates: start: 20110221, end: 20110305
  7. SULFAMETHOPRIM [Concomitant]
     Indication: INFECTION PROPHYLAXIS
     Dosage: UNK
     Route: 065
     Dates: start: 20110223, end: 20110305
  8. THYMOGLOBULIN [Suspect]
     Indication: MYELODYSPLASTIC SYNDROME
     Dosage: 187.5 MG, QD
     Route: 042
     Dates: start: 20110221, end: 20110225

REACTIONS (2)
  - MYELODYSPLASTIC SYNDROME [None]
  - GASTROINTESTINAL HAEMORRHAGE [None]
